FAERS Safety Report 7341621-6 (Version None)
Quarter: 2011Q1

REPORT INFORMATION
  Report Type: 
  Country: None (occurrence: None)
  Receive Date: 20110228
  Receipt Date: 20110214
  Transmission Date: 20110831
  Serious: Yes (Death)
  Sender: FDA-Public Use
  Company Number: 2011-0412

PATIENT
  Age: 70 Year
  Sex: Female

DRUGS (4)
  1. SOMATULINE AUTOGEL 120 MG (SOMATULINE SR) (LANREOTIDE) (LANREOTIDE ACE [Suspect]
     Indication: PRODUCT USED FOR UNKNOWN INDICATION
     Dosage: 120 MG, ONCE, INTRAMUSCULAR
     Route: 030
     Dates: start: 20110120, end: 20110120
  2. FUROSEMIDE(FUROSEMIDE) [Concomitant]
  3. BETAMETHASON SANDOZ (BETAMETHASON VALERATE) [Concomitant]
  4. LOSARTAN (LOSARTAN) [Concomitant]

REACTIONS (1)
  - DEATH [None]
